FAERS Safety Report 15004557 (Version 2)
Quarter: 2019Q4

REPORT INFORMATION
  Report Type: Report from Study
  Country: FR (occurrence: FR)
  Receive Date: 20180613
  Receipt Date: 20191206
  Transmission Date: 20200122
  Serious: Yes (Life-Threatening, Hospitalization)
  Sender: FDA-Public Use
  Company Number: FR-ROCHE-2137357

PATIENT
  Age: 76 Year
  Sex: Female

DRUGS (7)
  1. DOLIPRANE [Concomitant]
     Active Substance: ACETAMINOPHEN
  2. TRIATEC [RAMIPRIL] [Concomitant]
     Active Substance: RAMIPRIL
  3. BEVACIZUMAB. [Suspect]
     Active Substance: BEVACIZUMAB
     Indication: OVARIAN CANCER
     Dosage: FOLLOWED BY MAINTENANCE WITH BEVACIZUMAB (15 MG/KG) ON DAY 1?MOST RECENT DOSE ON 23/APR/2018
     Route: 042
     Dates: start: 20180118, end: 20180507
  4. CARBOPLATIN. [Suspect]
     Active Substance: CARBOPLATIN
     Indication: OVARIAN CANCER
     Dosage: AREA UNDER THE CURVE (AUC) 5?MOST RECENT DOSE ON 09/APR/2018
     Route: 042
     Dates: start: 20180118, end: 20180507
  5. BLINDED ATEZOLIZUMAB [Suspect]
     Active Substance: ATEZOLIZUMAB
     Indication: OVARIAN CANCER
     Dosage: FOLLOWED BY MAINTENANCE WITH EVERY 3 WEEKS ON DAY 1?MOST RECENT DOSE ON 23/APR/2018
     Route: 042
     Dates: start: 20180118, end: 20180507
  6. PEGYLATED LIPOSOMAL DOXORUBICIN [Suspect]
     Active Substance: DOXORUBICIN
     Indication: OVARIAN CANCER
     Dosage: MOST RECENT DOSE ON 09/APR/2018
     Route: 042
     Dates: start: 20180118, end: 20180507
  7. SMECTA [Concomitant]
     Active Substance: MONTMORILLONITE

REACTIONS (1)
  - Cardiac disorder [Recovered/Resolved]

NARRATIVE: CASE EVENT DATE: 20180507
